FAERS Safety Report 12441813 (Version 1)
Quarter: 2016Q2

REPORT INFORMATION
  Report Type: Spontaneous
  Country: US (occurrence: None)
  Receive Date: 20160606
  Receipt Date: 20160606
  Transmission Date: 20160815
  Serious: No
  Sender: FDA-Public Use
  Company Number: None

PATIENT
  Age: 63 Year
  Sex: Female

DRUGS (5)
  1. GLUCOSAMINE [Concomitant]
     Active Substance: GLUCOSAMINE
  2. IBRANCE [Suspect]
     Active Substance: PALBOCICLIB
     Indication: NEOPLASM MALIGNANT
     Dosage: QD 21 DAYS ON, 7 OFF
     Route: 048
     Dates: start: 201605
  3. NORVASC [Concomitant]
     Active Substance: AMLODIPINE BESYLATE
  4. COQ10 [Concomitant]
     Active Substance: UBIDECARENONE
  5. VITAMIN D3 [Concomitant]
     Active Substance: CHOLECALCIFEROL

REACTIONS (3)
  - Dizziness [None]
  - Abdominal discomfort [None]
  - Stomatitis [None]

NARRATIVE: CASE EVENT DATE: 201605
